FAERS Safety Report 9555622 (Version 1)
Quarter: 2013Q3

REPORT INFORMATION
  Report Type: Spontaneous
  Country: US (occurrence: None)
  Receive Date: 20130806
  Receipt Date: 20130806
  Transmission Date: 20140515
  Serious: Yes (Hospitalization)
  Sender: FDA-Public Use
  Company Number: 2013GMK005479

PATIENT
  Age: 85 Year
  Sex: Male

DRUGS (1)
  1. PRAMIPEXOLE [Suspect]
     Indication: PARKINSONISM
     Route: 048
     Dates: start: 20110615, end: 20111017

REACTIONS (2)
  - Bradycardia [None]
  - Syncope [None]
